FAERS Safety Report 23066597 (Version 1)
Quarter: 2023Q4

REPORT INFORMATION
  Report Type: Report from Study
  Country: DE (occurrence: DE)
  Receive Date: 20231015
  Receipt Date: 20231015
  Transmission Date: 20240109
  Serious: Yes (Hospitalization)
  Sender: FDA-Public Use
  Company Number: DE-ABBVIE-5448978

PATIENT
  Age: 68 Year
  Sex: Male

DRUGS (1)
  1. SKYRIZI [Suspect]
     Active Substance: RISANKIZUMAB-RZAA
     Indication: Psoriasis
     Route: 058

REACTIONS (9)
  - Shoulder operation [Recovering/Resolving]
  - Peripheral swelling [Not Recovered/Not Resolved]
  - Coronavirus infection [Recovered/Resolved]
  - Osteoarthritis [Recovering/Resolving]
  - Arthritis [Not Recovered/Not Resolved]
  - Drug ineffective [Not Recovered/Not Resolved]
  - Pain [Not Recovered/Not Resolved]
  - Osteoarthritis [Unknown]
  - Tendon rupture [Recovering/Resolving]

NARRATIVE: CASE EVENT DATE: 20200601
